FAERS Safety Report 14545340 (Version 1)
Quarter: 2018Q1

REPORT INFORMATION
  Report Type: Report from Study
  Country: US (occurrence: US)
  Receive Date: 20180218
  Receipt Date: 20180218
  Transmission Date: 20180509
  Serious: No
  Sender: FDA-Public Use
  Company Number: PHEH2018US005506

PATIENT
  Sex: Male

DRUGS (2)
  1. DOXYCYCLINE. [Concomitant]
     Active Substance: DOXYCYCLINE
     Indication: PRODUCT USED FOR UNKNOWN INDICATION
     Route: 065
  2. COSENTYX [Suspect]
     Active Substance: SECUKINUMAB
     Indication: PSORIASIS
     Dosage: 300 OT, Q4W
     Route: 065
     Dates: start: 20161205

REACTIONS (2)
  - Human ehrlichiosis [Unknown]
  - Human anaplasmosis [Unknown]

NARRATIVE: CASE EVENT DATE: 201709
